FAERS Safety Report 16384192 (Version 2)
Quarter: 2019Q2

REPORT INFORMATION
  Report Type: Spontaneous
  Country: MX (occurrence: MX)
  Receive Date: 20190603
  Receipt Date: 20190625
  Transmission Date: 20190711
  Serious: Yes (Disabling)
  Sender: FDA-Public Use
  Company Number: MX-ABBVIE-19K-107-2805348-00

PATIENT
  Age: 39 Year
  Sex: Male

DRUGS (1)
  1. VENCLEXTA [Suspect]
     Active Substance: VENETOCLAX
     Indication: ACUTE MYELOID LEUKAEMIA
     Route: 048
     Dates: start: 20190215, end: 20190314

REACTIONS (3)
  - Visual impairment [Unknown]
  - Blindness unilateral [Unknown]
  - Optic neuritis [Unknown]

NARRATIVE: CASE EVENT DATE: 2019
